FAERS Safety Report 11778900 (Version 9)
Quarter: 2017Q3

REPORT INFORMATION
  Report Type: Report from Study
  Country: IT (occurrence: IT)
  Receive Date: 20151125
  Receipt Date: 20170717
  Transmission Date: 20171127
  Serious: Yes (Hospitalization)
  Sender: FDA-Public Use
  Company Number: IT-EXELIXIS-XL18415005815

PATIENT
  Age: 56 Year
  Sex: Male
  Weight: 74 kg

DRUGS (6)
  1. XL184 [Suspect]
     Active Substance: CABOZANTINIB
     Indication: HEPATOCELLULAR CARCINOMA
     Dosage: 60 MG, QD
     Route: 048
     Dates: start: 20150925, end: 20151023
  2. ENTECAVIR. [Concomitant]
     Active Substance: ENTECAVIR
  3. LUVLON [Concomitant]
  4. PROPRANOLOL [Concomitant]
     Active Substance: PROPRANOLOL HYDROCHLORIDE
  5. METFORMIN [Concomitant]
     Active Substance: METFORMIN HYDROCHLORIDE
  6. POTASSIUM CANRENOATE [Concomitant]
     Active Substance: CANRENOATE POTASSIUM

REACTIONS (3)
  - Mesenteric artery thrombosis [Recovered/Resolved]
  - Gastrointestinal haemorrhage [Recovered/Resolved]
  - Portal hypertensive gastropathy [Recovered/Resolved]

NARRATIVE: CASE EVENT DATE: 20151030
